FAERS Safety Report 24117025 (Version 1)
Quarter: 2024Q3

REPORT INFORMATION
  Report Type: Report from Study
  Country: US (occurrence: US)
  Receive Date: 20240722
  Receipt Date: 20240722
  Transmission Date: 20241016
  Serious: Yes (Hospitalization)
  Sender: SERVIER
  Company Number: US-SERVIER-S24003262

PATIENT

DRUGS (2)
  1. TIBSOVO [Suspect]
     Active Substance: IVOSIDENIB
     Indication: Bone cancer
     Dosage: 500 MG, QD
     Route: 048
     Dates: start: 20231228
  2. TIBSOVO [Suspect]
     Active Substance: IVOSIDENIB
     Dosage: 500 MG, QD
     Route: 048

REACTIONS (3)
  - Weight decreased [Unknown]
  - Pneumonia [Unknown]
  - Off label use [Recovered/Resolved]

NARRATIVE: CASE EVENT DATE: 20231228
